FAERS Safety Report 23210731 (Version 1)
Quarter: 2023Q4

REPORT INFORMATION
  Report Type: Spontaneous
  Country: CH (occurrence: CH)
  Receive Date: 20231121
  Receipt Date: 20231121
  Transmission Date: 20240110
  Serious: Yes (Other)
  Sender: FDA-Public Use
  Company Number: CH-TAKEDA-2023TUS111768

PATIENT
  Age: 36 Year
  Sex: Female

DRUGS (1)
  1. ENTYVIO [Suspect]
     Active Substance: VEDOLIZUMAB
     Indication: Colitis
     Dosage: UNK
     Route: 065

REACTIONS (2)
  - Abortion infected [Unknown]
  - Pregnancy [Unknown]
